FAERS Safety Report 12654538 (Version 1)
Quarter: 2016Q3

REPORT INFORMATION
  Report Type: Spontaneous
  Country: US (occurrence: None)
  Receive Date: 20160815
  Receipt Date: 20160815
  Transmission Date: 20161109
  Serious: Yes (Disabling, Other)
  Sender: FDA-Public Use
  Company Number: None

PATIENT
  Age: 31 Year
  Sex: Female
  Weight: 81.65 kg

DRUGS (5)
  1. REGLAN [Suspect]
     Active Substance: METOCLOPRAMIDE HYDROCHLORIDE
     Indication: NAUSEA
     Dosage: 1 INJECTION(S) ONCE, IN ED INTO A VEIN
     Route: 042
     Dates: start: 20160803, end: 20160803
  2. OMEPRAZOLE. [Concomitant]
     Active Substance: OMEPRAZOLE
  3. LEVOTHYROXINE. [Concomitant]
     Active Substance: LEVOTHYROXINE
  4. PRENATAL VITAMIN [Concomitant]
     Active Substance: VITAMINS
  5. TYLENOL [Concomitant]
     Active Substance: ACETAMINOPHEN

REACTIONS (8)
  - Paraesthesia oral [None]
  - Fatigue [None]
  - Agitation [None]
  - Hyperhidrosis [None]
  - Myalgia [None]
  - Nausea [None]
  - Muscle twitching [None]
  - Speech disorder [None]

NARRATIVE: CASE EVENT DATE: 20160803
